FAERS Safety Report 25391427 (Version 1)
Quarter: 2025Q2

REPORT INFORMATION
  Report Type: Spontaneous
  Country: DE (occurrence: DE)
  Receive Date: 20250603
  Receipt Date: 20250603
  Transmission Date: 20250716
  Serious: Yes (Hospitalization, Other)
  Sender: SANDOZ
  Company Number: DE-MEDAC-2025-AER-02315

PATIENT
  Age: 61 Year
  Sex: Female

DRUGS (2)
  1. METHOTREXATE [Suspect]
     Active Substance: METHOTREXATE
     Indication: Product used for unknown indication
     Dosage: NORMAL DOSE: MTX 15 MG ONCE PER WEEK, THURSDAYS/
     Route: 048
  2. FOLIC ACID [Concomitant]
     Active Substance: FOLIC ACID
     Indication: Product used for unknown indication
     Dosage: ON FRIDAY, THE DAY AFTER MTX
     Route: 065

REACTIONS (11)
  - Toxicity to various agents [Unknown]
  - Neutropenic sepsis [Unknown]
  - Cerebellar infarction [Unknown]
  - Intensive care unit acquired weakness [Unknown]
  - Leukopenia [Unknown]
  - Inappropriate schedule of product administration [Unknown]
  - Abdominal pain [Unknown]
  - Nausea [Unknown]
  - Mucosal inflammation [Unknown]
  - Vomiting [Unknown]
  - Alopecia [Unknown]
